FAERS Safety Report 4692405-9 (Version None)
Quarter: 2005Q2

REPORT INFORMATION
  Report Type: 
  Country: None (occurrence: None)
  Receive Date: 20050615
  Receipt Date: 20050526
  Transmission Date: 20051028
  Serious: Yes (Death, Other)
  Sender: FDA-Public Use
  Company Number: JP_050506675

PATIENT
  Age: 70 Year
  Sex: Female

DRUGS (3)
  1. ONCOVIN [Suspect]
     Indication: MIXED OLIGO-ASTROCYTOMA
     Dosage: UNK
     Route: 065
     Dates: start: 20040201
  2. NIMUSTINE HYDROCHLORIDE [Concomitant]
  3. INTERFERON [Concomitant]

REACTIONS (4)
  - CONVULSION [None]
  - PNEUMOCYSTIS JIROVECI PNEUMONIA [None]
  - PNEUMONITIS [None]
  - THROMBOSIS [None]
